FAERS Safety Report 10432397 (Version 1)
Quarter: 2014Q3

REPORT INFORMATION
  Report Type: Spontaneous
  Country: US (occurrence: None)
  Receive Date: 20140815
  Receipt Date: 20140815
  Transmission Date: 20150326
  Serious: No
  Sender: FDA-Public Use
  Company Number: A-US2014-102085

PATIENT
  Age: 60 Year
  Sex: Female

DRUGS (12)
  1. ALENDRONATE (ALENDRONATE SODIUM) [Concomitant]
     Active Substance: ALENDRONATE SODIUM
  2. OPSUMIT [Suspect]
     Active Substance: MACITENTAN
     Indication: ESSENTIAL HYPERTENSION
     Route: 048
     Dates: start: 20140601, end: 2014
  3. PROVENTIL (SALBUTAMOL) [Concomitant]
  4. SINGULAIR (MONTELUKAST SODIUM) [Concomitant]
  5. IPRATROPIUM BROMIDE. [Concomitant]
     Active Substance: IPRATROPIUM BROMIDE
  6. LASIX [Concomitant]
     Active Substance: FUROSEMIDE
  7. FLONASE [Concomitant]
     Active Substance: FLUTICASONE PROPIONATE
  8. SYMBICORT (BUDESONIDE, FORMOTEROL, FUMARATE) [Concomitant]
  9. ASPIRIN (ACETYLSALICYLIC ACID) [Concomitant]
     Active Substance: ASPIRIN
  10. LIPITOR [Concomitant]
     Active Substance: ATORVASTATIN CALCIUM
  11. DOC-Q-LAX (CASANTHRANOL, DOCUSATE SODIUM) [Concomitant]
  12. DEXILANT [Concomitant]
     Active Substance: DEXLANSOPRAZOLE

REACTIONS (2)
  - Bronchitis [None]
  - Influenza like illness [None]
